FAERS Safety Report 9100454 (Version 1)
Quarter: 2013Q1

REPORT INFORMATION
  Report Type: Spontaneous
  Country: US (occurrence: US)
  Receive Date: 20130215
  Receipt Date: 20130215
  Transmission Date: 20140127
  Serious: No
  Sender: FDA-Public Use
  Company Number: US-BAYER-2013-017852

PATIENT
  Age: 66 Year
  Sex: Female

DRUGS (1)
  1. FINACEA [Suspect]

REACTIONS (1)
  - Skin discolouration [None]
